FAERS Safety Report 24273270 (Version 1)
Quarter: 2024Q3

REPORT INFORMATION
  Report Type: Spontaneous
  Country: RO (occurrence: RO)
  Receive Date: 20240902
  Receipt Date: 20240902
  Transmission Date: 20241016
  Serious: Yes (Other)
  Sender: MACLEODS
  Company Number: RO-MLMSERVICE-20240814-PI161719-00323-1

PATIENT

DRUGS (2)
  1. TRIAMCINOLONE [Suspect]
     Active Substance: TRIAMCINOLONE
     Indication: Intervertebral disc protrusion
     Route: 008
  2. BUPIVACAINE [Concomitant]
     Active Substance: BUPIVACAINE
     Indication: Intervertebral disc protrusion
     Dosage: BILATERAL L5-S1 TRANSFORAMINAL EPIDURAL STEROID INJECTIONS WITH 1ML OF 0.25% BUPIVACAINE
     Route: 008

REACTIONS (8)
  - Pseudo Cushing^s syndrome [Unknown]
  - Major depression [Recovered/Resolved]
  - Panic disorder [Unknown]
  - Insomnia [Recovered/Resolved]
  - Vomiting [Recovered/Resolved]
  - Post-traumatic stress disorder [Unknown]
  - Polymenorrhagia [Unknown]
  - Nausea [Recovered/Resolved]
